FAERS Safety Report 9412768 (Version 2)
Quarter: 2014Q1

REPORT INFORMATION
  Report Type: Report from Study
  Country: NL (occurrence: NL)
  Receive Date: 20130722
  Receipt Date: 20140121
  Transmission Date: 20141002
  Serious: Yes (Other)
  Sender: FDA-Public Use
  Company Number: PHHY2013NL077336

PATIENT
  Sex: Female

DRUGS (5)
  1. ZOMETA [Suspect]
     Indication: BREAST CANCER METASTATIC
     Dosage: 4 MG / 100 ML, 1 PER 8 WEEKS
     Route: 042
  2. ZOMETA [Suspect]
     Dosage: 4 MG / 100 ML, 1 PER 8 WEEKS
     Route: 042
     Dates: start: 20110916
  3. ZOMETA [Suspect]
     Dosage: 4 MG / 100 ML, 1 PER 8 WEEKS
     Route: 042
     Dates: start: 20130524
  4. ZOMETA [Suspect]
     Dosage: 4 MG / 100 ML, 1 PER 8 WEEKS
     Route: 042
     Dates: start: 20130719
  5. ZOMETA [Suspect]
     Dosage: 4 MG  / 100 ML, 1 PER 8 WEEKS
     Route: 042
     Dates: end: 20131122

REACTIONS (2)
  - Oesophageal carcinoma [Not Recovered/Not Resolved]
  - Second primary malignancy [Not Recovered/Not Resolved]
